FAERS Safety Report 8108960-2 (Version None)
Quarter: 2012Q1

REPORT INFORMATION
  Report Type: 
  Country: None (occurrence: None)
  Receive Date: 20120202
  Receipt Date: 20120103
  Transmission Date: 20120608
  Serious: No
  Sender: FDA-Public Use
  Company Number: US-AMGEN-USASP2012000486

PATIENT
  Age: 56 Year
  Sex: Male
  Weight: 99.773 kg

DRUGS (1)
  1. ENBREL [Suspect]
     Indication: PSORIATIC ARTHROPATHY
     Dosage: 50 MG, QWK
     Route: 058
     Dates: start: 20110901

REACTIONS (2)
  - UPPER RESPIRATORY TRACT INFECTION [None]
  - PSORIATIC ARTHROPATHY [None]
